FAERS Safety Report 20565178 (Version 1)
Quarter: 2022Q1

REPORT INFORMATION
  Report Type: Spontaneous
  Country: US (occurrence: US)
  Receive Date: 20220308
  Receipt Date: 20220308
  Transmission Date: 20220424
  Serious: No
  Sender: FDA-Public Use
  Company Number: US-ALLERGAN-2138194US

PATIENT
  Age: 80 Year
  Sex: Female

DRUGS (4)
  1. ESTRACE [Suspect]
     Active Substance: ESTRADIOL
     Indication: Atrophic vulvovaginitis
     Dosage: UNK, QPM
     Dates: start: 20211104, end: 20211106
  2. ESTRACE [Suspect]
     Active Substance: ESTRADIOL
     Indication: Pollakiuria
  3. METOPROLOL [Concomitant]
     Active Substance: METOPROLOL
     Indication: Tachycardia
  4. PANTOPRAZOLE [Concomitant]
     Active Substance: PANTOPRAZOLE
     Indication: Gastrooesophageal reflux disease

REACTIONS (6)
  - Bladder irritation [Unknown]
  - Urethritis noninfective [Unknown]
  - Vulvovaginal pain [Unknown]
  - Pollakiuria [Unknown]
  - Product use in unapproved indication [Unknown]
  - Pelvic pain [Unknown]

NARRATIVE: CASE EVENT DATE: 20211104
